FAERS Safety Report 18502922 (Version 1)
Quarter: 2020Q4

REPORT INFORMATION
  Report Type: Spontaneous
  Country: US (occurrence: US)
  Receive Date: 20201113
  Receipt Date: 20201113
  Transmission Date: 20210114
  Serious: No
  Sender: FDA-Public Use
  Company Number: US-IPSEN BIOPHARMACEUTICALS, INC.-2020-21913

PATIENT
  Age: 27 Year
  Sex: Female

DRUGS (3)
  1. RESTYLANE KYSSE [Suspect]
     Active Substance: HYALURONIC ACID
     Indication: SKIN WRINKLING
     Dosage: 1 ML; 300 UNITS?1/2 SYRINGE
     Dates: start: 20200708, end: 20200708
  2. IBUPROFEN. [Concomitant]
     Active Substance: IBUPROFEN
     Dates: start: 20200708, end: 20201005
  3. DYSPORT [Suspect]
     Active Substance: ABOBOTULINUMTOXINA
     Indication: SKIN WRINKLING
     Dosage: 30 UNITS
     Route: 065
     Dates: start: 20200708, end: 20200708

REACTIONS (5)
  - Lip swelling [Recovered/Resolved]
  - Injection site swelling [Recovered/Resolved]
  - Lip cosmetic procedure [Recovered/Resolved]
  - Injection site bruising [Recovered/Resolved]
  - Therapeutic response shortened [Unknown]

NARRATIVE: CASE EVENT DATE: 2020
